FAERS Safety Report 6307711-1 (Version None)
Quarter: 2009Q3

REPORT INFORMATION
  Report Type: 
  Country: None (occurrence: None)
  Receive Date: 20090813
  Receipt Date: 20090730
  Transmission Date: 20100115
  Serious: Yes (Hospitalization)
  Sender: FDA-Public Use
  Company Number: US-EISAI INC.-E7273-00086-CLI-US

PATIENT
  Age: 72 Year
  Sex: Male
  Weight: 89.9 kg

DRUGS (2)
  1. TARGRETIN [Suspect]
     Indication: ACUTE MYELOID LEUKAEMIA
     Route: 048
     Dates: start: 20090623, end: 20090720
  2. SARGRAMOSTIM [Suspect]
     Dates: start: 20090623, end: 20090720

REACTIONS (2)
  - PYREXIA [None]
  - SWELLING FACE [None]
